FAERS Safety Report 19420917 (Version 3)
Quarter: 2021Q3

REPORT INFORMATION
  Report Type: Report from Study
  Country: None (occurrence: AU)
  Receive Date: 20210616
  Receipt Date: 20210917
  Transmission Date: 20211014
  Serious: Yes (Other)
  Sender: FDA-Public Use
  Company Number: AU-ABBVIE-21K-008-3951552-00

PATIENT
  Age: 72 Year
  Sex: Male
  Weight: 84.2 kg

DRUGS (5)
  1. DIAFORMIN XR [Concomitant]
     Active Substance: METFORMIN HYDROCHLORIDE
     Indication: TYPE 2 DIABETES MELLITUS
     Dates: start: 2005
  2. UPADACITINIB [Suspect]
     Active Substance: UPADACITINIB
     Indication: RHEUMATOID ARTHRITIS
     Route: 048
  3. LYRICA [Concomitant]
     Active Substance: PREGABALIN
     Route: 048
     Dates: start: 20210603
  4. LYRICA [Concomitant]
     Active Substance: PREGABALIN
     Indication: SCIATICA
     Route: 048
     Dates: start: 202007, end: 20210602
  5. METHOTREXATE. [Concomitant]
     Active Substance: METHOTREXATE
     Indication: PRODUCT USED FOR UNKNOWN INDICATION
     Route: 048
     Dates: start: 2012

REACTIONS (9)
  - Skin neoplasm excision [Recovered/Resolved]
  - Abscess [Recovered/Resolved]
  - Cancer surgery [Recovered/Resolved]
  - Actinic keratosis [Recovered/Resolved]
  - Wound [Recovered/Resolved]
  - Hypercholesterolaemia [Recovered/Resolved with Sequelae]
  - Cyst removal [Recovered/Resolved]
  - Skin cancer [Recovered/Resolved]
  - Folliculitis [Recovered/Resolved]

NARRATIVE: CASE EVENT DATE: 20210521
